FAERS Safety Report 5453095-0 (Version None)
Quarter: 2007Q3

REPORT INFORMATION
  Report Type: 
  Country: None (occurrence: None)
  Receive Date: 20070914
  Receipt Date: 20070905
  Transmission Date: 20080115
  Serious: Yes (Death, Life-Threatening, Hospitalization)
  Sender: FDA-Public Use
  Company Number: FR-PFIZER INC-2007074603

PATIENT
  Sex: Female

DRUGS (10)
  1. TAHOR [Suspect]
     Route: 048
  2. CIFLOX [Suspect]
     Indication: INFECTION
     Route: 042
  3. KARDEGIC [Suspect]
     Route: 048
     Dates: start: 20070501, end: 20070614
  4. CORDARONE [Suspect]
     Indication: ATRIAL FIBRILLATION
     Route: 048
     Dates: start: 20070501, end: 20070717
  5. TAZOCILLINE [Suspect]
     Indication: INFECTION
     Route: 042
     Dates: start: 20070611, end: 20070617
  6. SINTROM [Suspect]
     Indication: ATRIAL FIBRILLATION
     Route: 048
     Dates: start: 20070612, end: 20070614
  7. TARDYFERON [Concomitant]
     Route: 048
  8. LEVOCARNIL [Concomitant]
     Route: 042
  9. CARDENSIEL [Concomitant]
     Route: 048
  10. LASIX [Concomitant]
     Route: 042

REACTIONS (4)
  - ANAEMIA [None]
  - PULMONARY ALVEOLAR HAEMORRHAGE [None]
  - PUNCTURE SITE HAEMORRHAGE [None]
  - RENAL FAILURE [None]
